FAERS Safety Report 4583751-8 (Version None)
Quarter: 2005Q1

REPORT INFORMATION
  Report Type: 
  Country: None (occurrence: None)
  Receive Date: 20050211
  Receipt Date: 20050201
  Transmission Date: 20050727
  Serious: Yes (Hospitalization)
  Sender: FDA-Public Use
  Company Number: 2005012498

PATIENT
  Age: 43 Year
  Sex: Male

DRUGS (7)
  1. VIBRAMYCIN [Suspect]
     Indication: PYODERMA
     Dosage: ORAL
     Route: 048
     Dates: start: 20041102, end: 20050110
  2. BEZAFIBRATE (BEZAFIBRATE) [Suspect]
     Indication: HYPERLIPIDAEMIA
     Dosage: 400 MG (400 MG, 1 IN 1 D), ORAL
     Route: 048
     Dates: start: 20040330
  3. ETHYL ICOSAPENTATE (ETHYL ICOSAPENTATE) [Suspect]
     Indication: HYPERLIPIDAEMIA
     Dosage: 1800 MG (600 MG, 3 IN 1 D), ORAL
     Route: 048
     Dates: start: 20040511
  4. PERINDOPRIL (PERINDOPRIL) [Suspect]
     Indication: HYPERTENSION
     Dosage: 4 MG (4 MG, 1 IN 1 D), ORAL
     Route: 048
     Dates: start: 20040330
  5. ALLOPURINOL [Suspect]
     Indication: HYPERURICAEMIA
     Dosage: 100 MG (100 MG, 1 IN 1 D), ORAL
     Route: 048
     Dates: start: 20040511
  6. IFENPRODIL TARTRATE (IFENPRODIL TARTRATE) [Suspect]
     Indication: CEREBRAL INFARCTION
     Dosage: 60 MG (20 MG, 3 IN 1 D), ORAL
     Route: 048
     Dates: start: 20040907
  7. BRON (CAFFEINE, CHLORPHENAMINE MALEATE, DIHYDROCODEINE PHOSPHATE, METH [Concomitant]

REACTIONS (9)
  - DEPRESSED LEVEL OF CONSCIOUSNESS [None]
  - DRUG INTERACTION [None]
  - GAMMA-GLUTAMYLTRANSFERASE INCREASED [None]
  - HALITOSIS [None]
  - HEPATIC ENCEPHALOPATHY [None]
  - HYPERAMMONAEMIA [None]
  - LIVER DISORDER [None]
  - NASOPHARYNGITIS [None]
  - SOMNOLENCE [None]
